FAERS Safety Report 4632651-3 (Version None)
Quarter: 2005Q2

REPORT INFORMATION
  Report Type: 
  Country: None (occurrence: None)
  Receive Date: 20050331
  Receipt Date: 20041006
  Transmission Date: 20051028
  Serious: Yes (Other)
  Sender: FDA-Public Use
  Company Number: 200414793BCC

PATIENT
  Age: 15 Year
  Sex: Male
  Weight: 67.1324 kg

DRUGS (5)
  1. ALEVE [Suspect]
     Indication: HEADACHE
     Dosage: 220 MG, ONCE, ORAL
     Route: 048
  2. ALEVE [Suspect]
     Indication: PAIN IN EXTREMITY
     Dosage: 220 MG, ONCE, ORAL
     Route: 048
  3. DIGOXIN [Concomitant]
  4. ENALAPRIL [Concomitant]
  5. ADDERALL XR 15 [Concomitant]

REACTIONS (4)
  - EYE SWELLING [None]
  - HYPERSENSITIVITY [None]
  - PARAESTHESIA [None]
  - SWELLING FACE [None]
